FAERS Safety Report 13851319 (Version 3)
Quarter: 2019Q2

REPORT INFORMATION
  Report Type: Spontaneous
  Country: US (occurrence: US)
  Receive Date: 20170810
  Receipt Date: 20190613
  Transmission Date: 20190711
  Serious: No
  Sender: FDA-Public Use
  Company Number: US-BRISTOL-MYERS SQUIBB COMPANY-BMS-2017-071938

PATIENT
  Sex: Female
  Weight: 82.1 kg

DRUGS (2)
  1. YERVOY [Suspect]
     Active Substance: IPILIMUMAB
     Indication: PRODUCT USED FOR UNKNOWN INDICATION
     Dosage: 1 DOSAGE FORM
     Route: 042
  2. YERVOY [Suspect]
     Active Substance: IPILIMUMAB
     Indication: MALIGNANT MELANOMA STAGE III
     Dosage: 10 MG/KG, Q3WK; 4 DOSES
     Route: 042

REACTIONS (3)
  - Discontinued product administered [Unknown]
  - Weight increased [Unknown]
  - Prescribed overdose [Unknown]
